FAERS Safety Report 19076942 (Version 1)
Quarter: 2021Q1

REPORT INFORMATION
  Report Type: Spontaneous
  Country: US (occurrence: US)
  Receive Date: 20210330
  Receipt Date: 20210330
  Transmission Date: 20210420
  Serious: Yes (Hospitalization, Other)
  Sender: FDA-Public Use
  Company Number: None

PATIENT

DRUGS (6)
  1. CARVEDIOLOL [Concomitant]
  2. CLONIDINE. [Concomitant]
     Active Substance: CLONIDINE
  3. OXYCODONE [Suspect]
     Active Substance: OXYCODONE
  4. TORSEMIDE. [Concomitant]
     Active Substance: TORSEMIDE
  5. LISINOPRIL. [Concomitant]
     Active Substance: LISINOPRIL
  6. HYDRALAZINE [Suspect]
     Active Substance: HYDRALAZINE HYDROCHLORIDE

REACTIONS (3)
  - Fall [None]
  - Upper limb fracture [None]
  - Femoral neck fracture [None]

NARRATIVE: CASE EVENT DATE: 20190729
